FAERS Safety Report 16272438 (Version 2)
Quarter: 2019Q2

REPORT INFORMATION
  Report Type: Spontaneous
  Country: BR (occurrence: BR)
  Receive Date: 20190506
  Receipt Date: 20190507
  Transmission Date: 20190711
  Serious: Yes (Other)
  Sender: FDA-Public Use
  Company Number: BR-ROCHE-2309371

PATIENT
  Age: 50 Year
  Sex: Male

DRUGS (1)
  1. TECENTRIQ [Suspect]
     Active Substance: ATEZOLIZUMAB
     Indication: CLEAR CELL RENAL CELL CARCINOMA
     Dosage: 5 CYCLES
     Route: 065
     Dates: start: 20170830

REACTIONS (1)
  - Pulmonary mass [Recovering/Resolving]
